FAERS Safety Report 9849164 (Version 1)
Quarter: 2014Q1

REPORT INFORMATION
  Report Type: Spontaneous
  Country: US (occurrence: None)
  Receive Date: 20140127
  Receipt Date: 20140127
  Transmission Date: 20141002
  Serious: Yes (Disabling)
  Sender: FDA-Public Use
  Company Number: None

PATIENT
  Age: 55 Year
  Sex: Female
  Weight: 72.58 kg

DRUGS (1)
  1. FOSAMAX [Suspect]
     Indication: OSTEOPOROSIS
     Dosage: ONCE A WEEK, TAKEN BY MOUTH
     Dates: start: 20131216, end: 20131216

REACTIONS (4)
  - Back pain [None]
  - Urticaria [None]
  - Abasia [None]
  - Decreased activity [None]
